FAERS Safety Report 4377073-8 (Version None)
Quarter: 2004Q2

REPORT INFORMATION
  Report Type: 
  Country: None (occurrence: None)
  Receive Date: 20040614
  Receipt Date: 20040611
  Transmission Date: 20050107
  Serious: Yes (Hospitalization)
  Sender: FDA-Public Use
  Company Number: FR-ROCHE-370638

PATIENT
  Age: 78 Year
  Sex: Female

DRUGS (7)
  1. NICARDIPINE HCL [Suspect]
     Indication: ESSENTIAL HYPERTENSION
     Route: 042
     Dates: start: 20040118, end: 20040120
  2. PRISTINAMYCIN [Concomitant]
     Route: 048
     Dates: start: 20040121, end: 20040122
  3. PERINDOPRIL [Concomitant]
     Route: 048
  4. AMLODIPINE BESYLATE [Concomitant]
     Route: 048
  5. DAFALGAN CODEINE [Concomitant]
     Route: 048
  6. CIPROFLOXACIN [Concomitant]
  7. BROMAZEPAM [Concomitant]
     Route: 048

REACTIONS (2)
  - CATHETER SITE RELATED REACTION [None]
  - THROMBOPHLEBITIS SUPERFICIAL [None]
